FAERS Safety Report 5025990-8 (Version None)
Quarter: 2006Q2

REPORT INFORMATION
  Report Type: 
  Country: None (occurrence: None)
  Receive Date: 20060427
  Receipt Date: 20050922
  Transmission Date: 20061013
  Serious: Yes (Disabling, Other)
  Sender: FDA-Public Use
  Company Number: 2005132610

PATIENT
  Sex: Male
  Weight: 29.4838 kg

DRUGS (7)
  1. ZITHROMAX [Suspect]
     Indication: EAR INFECTION
     Dosage: ORAL
     Route: 048
  2. ADVAIR DISKUS 100/50 [Concomitant]
  3. MONTELUKAST SODIUM (MONTELUKAST SODIUM) [Concomitant]
  4. AMBUTOL (ETHAMBUTOL DIHYDROCHLORIDE) [Concomitant]
  5. ALL OTHER THERAPEUTIC PRODUCTS (ALL OTHER THERAPEUTIC PRODUCTS) [Concomitant]
  6. ALLERGY MEDICATION (ALLERGY MEDICATION) [Concomitant]
  7. ZYRTEC [Concomitant]

REACTIONS (1)
  - DEAFNESS [None]
